FAERS Safety Report 14067100 (Version 1)
Quarter: 2017Q4

REPORT INFORMATION
  Report Type: Spontaneous
  Country: US (occurrence: US)
  Receive Date: 20171007
  Receipt Date: 20171007
  Transmission Date: 20180321
  Serious: Yes (Other)
  Sender: FDA-Public Use
  Company Number: None

PATIENT
  Age: 66 Year
  Weight: 80 kg

DRUGS (1)
  1. ELBASVIR-GRAZOPREVIR [Suspect]
     Active Substance: ELBASVIR\GRAZOPREVIR

REACTIONS (2)
  - Abdominal pain [None]
  - Product expiration date issue [None]

NARRATIVE: CASE EVENT DATE: 20171007
